FAERS Safety Report 8237279-4 (Version None)
Quarter: 2012Q1

REPORT INFORMATION
  Report Type: 
  Country: None (occurrence: None)
  Receive Date: 20120327
  Receipt Date: 20120320
  Transmission Date: 20120608
  Serious: Yes (Hospitalization)
  Sender: FDA-Public Use
  Company Number: ES-ABBOTT-12P-144-0916926-00

PATIENT
  Sex: Female
  Weight: 65 kg

DRUGS (6)
  1. DULOXETIME HYDROCHLORIDE [Concomitant]
     Indication: PRODUCT USED FOR UNKNOWN INDICATION
     Route: 048
  2. METHOTREXATE [Concomitant]
     Indication: RHEUMATOID ARTHRITIS
  3. FOLIC ACID [Concomitant]
     Indication: PRODUCT USED FOR UNKNOWN INDICATION
     Route: 048
  4. FENTANYL [Concomitant]
     Indication: PAIN
     Dosage: 50 MG/H
     Route: 062
  5. HUMIRA [Suspect]
     Indication: RHEUMATOID ARTHRITIS
     Route: 058
     Dates: start: 20060504, end: 20111101
  6. METHYLPREDNISOLONE [Concomitant]
     Indication: RHEUMATOID ARTHRITIS
     Route: 048

REACTIONS (5)
  - DYSPNOEA [None]
  - PYREXIA [None]
  - ACUTE RESPIRATORY FAILURE [None]
  - RESPIRATORY TRACT INFECTION [None]
  - PRODUCTIVE COUGH [None]
